FAERS Safety Report 25606271 (Version 1)
Quarter: 2025Q3

REPORT INFORMATION
  Report Type: Spontaneous
  Country: US (occurrence: None)
  Receive Date: 20250724
  Receipt Date: 20250724
  Transmission Date: 20251020
  Serious: Yes (Life-Threatening, Hospitalization)
  Sender: FDA-CTU
  Company Number: None

PATIENT
  Age: 4 Year
  Sex: Male

DRUGS (3)
  1. VERAPAMIL [Suspect]
     Active Substance: VERAPAMIL HYDROCHLORIDE
     Indication: Hypertrophic cardiomyopathy
     Dates: start: 19960101, end: 19960801
  2. PROPRANOLOL [Suspect]
     Active Substance: PROPRANOLOL HYDROCHLORIDE
  3. UNSPECIFIED INGREDIENT [Concomitant]
     Active Substance: UNSPECIFIED INGREDIENT

REACTIONS (8)
  - Somnolence [None]
  - Heart rate decreased [None]
  - Unresponsive to stimuli [None]
  - Hypopnoea [None]
  - Pupil fixed [None]
  - Oral discharge [None]
  - Cyanosis [None]
  - Blood glucose decreased [None]

NARRATIVE: CASE EVENT DATE: 19960801
